FAERS Safety Report 13169911 (Version 1)
Quarter: 2017Q1

REPORT INFORMATION
  Report Type: Spontaneous
  Country: US (occurrence: US)
  Receive Date: 20170131
  Receipt Date: 20170131
  Transmission Date: 20170428
  Serious: No
  Sender: FDA-Public Use
  Company Number: US-ABBVIE-16K-163-1625098-00

PATIENT
  Sex: Female

DRUGS (2)
  1. HUMIRA [Suspect]
     Active Substance: ADALIMUMAB
     Indication: PRODUCT USED FOR UNKNOWN INDICATION
     Route: 058
     Dates: end: 20151210
  2. HUMIRA [Suspect]
     Active Substance: ADALIMUMAB
     Dosage: RE-STARTED WITH FOUR PEN LOADING DOSE
     Route: 058
     Dates: start: 20160407, end: 20160407

REACTIONS (2)
  - Hordeolum [Unknown]
  - Cellulitis [Unknown]

NARRATIVE: CASE EVENT DATE: 201512
